FAERS Safety Report 5821626-4 (Version None)
Quarter: 2008Q3

REPORT INFORMATION
  Report Type: 
  Country: None (occurrence: None)
  Receive Date: 20080722
  Receipt Date: 20080714
  Transmission Date: 20090109
  Serious: Yes (Life-Threatening, Hospitalization)
  Sender: FDA-Public Use
  Company Number: WAES 0806USA08291

PATIENT
  Age: 82 Year
  Sex: Male
  Weight: 107.5025 kg

DRUGS (13)
  1. CAP VORINOSTAT [Suspect]
     Indication: ACUTE MYELOID LEUKAEMIA
     Dosage: 400 MG DAILY, PO
     Route: 048
     Dates: start: 20080504, end: 20080517
  2. CAP VORINOSTAT [Suspect]
     Indication: ACUTE MYELOID LEUKAEMIA
     Dosage: 400 MG DAILY, PO
     Route: 048
     Dates: start: 20080614, end: 20080706
  3. DECITABINE [Suspect]
     Indication: ACUTE MYELOID LEUKAEMIA
     Dosage: 200 MG.M(2) 1X, IV
     Route: 042
     Dates: start: 20080429, end: 20080503
  4. DECITABINE [Suspect]
     Indication: ACUTE MYELOID LEUKAEMIA
     Dosage: 200 MG.M(2) 1X, IV
     Route: 042
     Dates: start: 20080609, end: 20080613
  5. COUMADIN [Concomitant]
  6. LOVENOX [Concomitant]
  7. NORVASC [Concomitant]
  8. PROTONIX [Concomitant]
  9. VICODIN [Concomitant]
  10. ACYCLOVIR [Concomitant]
  11. NYSTATIN [Concomitant]
  12. ROPINIROLE [Concomitant]
  13. VITAMINS (UNSPECIFIED) [Concomitant]

REACTIONS (10)
  - BRONCHOPULMONARY ASPERGILLOSIS [None]
  - CLOSTRIDIAL INFECTION [None]
  - ESCHERICHIA BACTERAEMIA [None]
  - FATIGUE [None]
  - FEBRILE NEUTROPENIA [None]
  - HYPERHIDROSIS [None]
  - OROPHARYNGEAL PAIN [None]
  - RETCHING [None]
  - THROMBOCYTOPENIA [None]
  - WHITE BLOOD CELL COUNT DECREASED [None]
